FAERS Safety Report 26212318 (Version 1)
Quarter: 2025Q4

REPORT INFORMATION
  Report Type: Spontaneous
  Country: EU (occurrence: EU)
  Receive Date: 20251230
  Receipt Date: 20251230
  Transmission Date: 20260118
  Serious: Yes (Hospitalization)
  Sender: AUROBINDO
  Company Number: EU-AUROBINDO-AS20156945

PATIENT
  Age: 54 Year
  Sex: Male
  Weight: 86 kg

DRUGS (4)
  1. PRAVASTATIN [Interacting]
     Active Substance: PRAVASTATIN
     Indication: Hypercholesterolaemia
     Dosage: 40 MG DAILY
     Route: 061
     Dates: start: 20150320, end: 20150717
  2. HYDROCHLOROTHIAZIDE [Interacting]
     Active Substance: HYDROCHLOROTHIAZIDE
     Indication: Hypertension
     Dosage: 12.5 MG DAILY
     Route: 061
  3. GLIMEPIRIDE [Concomitant]
     Active Substance: GLIMEPIRIDE
     Indication: Type 2 diabetes mellitus
     Dosage: 1 DF
     Route: 061
  4. METFORMIN [Concomitant]
     Active Substance: METFORMIN HYDROCHLORIDE
     Indication: Type 2 diabetes mellitus
     Dosage: 2000 MG
     Route: 061

REACTIONS (5)
  - Rhabdomyolysis [Recovered/Resolved]
  - Blood sodium decreased [Recovered/Resolved]
  - Blood creatine phosphokinase increased [Unknown]
  - Drug interaction [Unknown]
  - Viral infection [Unknown]

NARRATIVE: CASE EVENT DATE: 20150717
